FAERS Safety Report 24211571 (Version 1)
Quarter: 2024Q3

REPORT INFORMATION
  Report Type: Spontaneous
  Country: US (occurrence: US)
  Receive Date: 20240814
  Receipt Date: 20240814
  Transmission Date: 20241016
  Serious: Yes (Hospitalization, Other)
  Sender: INCYTE
  Company Number: US-INCYTE CORPORATION-2024IN008395

PATIENT

DRUGS (1)
  1. JAKAFI [Suspect]
     Active Substance: RUXOLITINIB
     Indication: Essential thrombocythaemia
     Dosage: 15 MILLIGRAM, BID (5MG X 3 TABLETS)
     Route: 048
     Dates: start: 202012

REACTIONS (2)
  - Bladder neoplasm [Unknown]
  - Off label use [Unknown]

NARRATIVE: CASE EVENT DATE: 20201201
